FAERS Safety Report 9204435 (Version 2)
Quarter: 2013Q3

REPORT INFORMATION
  Report Type: Spontaneous
  Country: AT (occurrence: AT)
  Receive Date: 20130402
  Receipt Date: 20130709
  Transmission Date: 20140515
  Serious: Yes (Death)
  Sender: FDA-Public Use
  Company Number: AT-JNJFOC-20130311613

PATIENT
  Sex: Female

DRUGS (11)
  1. HALDOL [Suspect]
     Indication: ACUTE PSYCHOSIS
     Route: 048
  2. HALDOL [Suspect]
     Indication: ACUTE PSYCHOSIS
     Route: 048
     Dates: end: 2012
  3. HALDOL [Suspect]
     Indication: ACUTE PSYCHOSIS
     Route: 048
     Dates: start: 2008
  4. SEROQUEL [Concomitant]
     Route: 065
  5. CIPRALEX [Concomitant]
     Route: 065
  6. PRAXITEN [Concomitant]
     Dosage: AS NEEDED
     Route: 065
  7. ATARAX [Concomitant]
     Dosage: AS NEEDED
     Route: 065
  8. AKINETON [Concomitant]
     Indication: EXTRAPYRAMIDAL DISORDER
     Dosage: AS NEEDED
     Route: 065
  9. DOMINAL [Concomitant]
     Indication: INSOMNIA
     Dosage: AS NEEDED
     Route: 065
  10. CITALOPRAM [Concomitant]
     Dosage: AS NEEDED
     Route: 065
  11. MEXALEN [Concomitant]
     Dosage: AS NEEDED
     Route: 065

REACTIONS (2)
  - Infection [Fatal]
  - Parkinsonism [Not Recovered/Not Resolved]
